FAERS Safety Report 6702009-1 (Version None)
Quarter: 2010Q2

REPORT INFORMATION
  Report Type: 
  Country: None (occurrence: None)
  Receive Date: 20100429
  Receipt Date: 20100420
  Transmission Date: 20101027
  Serious: Yes (Other)
  Sender: FDA-Public Use
  Company Number: GB-PFIZER INC-2010049461

PATIENT
  Age: 44 Year
  Sex: Male

DRUGS (1)
  1. CHAMPIX [Suspect]
     Dosage: UNK
     Route: 048
     Dates: start: 20100324, end: 20100410

REACTIONS (6)
  - BACK PAIN [None]
  - CHEST PAIN [None]
  - CHILLS [None]
  - DYSPHONIA [None]
  - HEADACHE [None]
  - PYREXIA [None]
